FAERS Safety Report 10931263 (Version 1)
Quarter: 2015Q1

REPORT INFORMATION
  Report Type: Spontaneous
  Country: US (occurrence: None)
  Receive Date: 20150316
  Receipt Date: 20150316
  Transmission Date: 20150721
  Serious: Yes (Hospitalization)
  Sender: FDA-Public Use
  Company Number: NL01PV15_38570

PATIENT
  Age: 70 Year
  Sex: Female

DRUGS (2)
  1. ZOLPIDEM [Suspect]
     Active Substance: ZOLPIDEM\ZOLPIDEM TARTRATE
     Indication: INSOMNIA
     Dosage: AT BEDTIME
  2. WARFARIN (WARFARIN) [Concomitant]
     Active Substance: WARFARIN

REACTIONS (9)
  - Acute kidney injury [None]
  - Activities of daily living impaired [None]
  - Arthralgia [None]
  - Post procedural complication [None]
  - Femur fracture [None]
  - Dysuria [None]
  - Fluid overload [None]
  - Delirium [None]
  - Fall [None]
